FAERS Safety Report 11225041 (Version 1)
Quarter: 2015Q2

REPORT INFORMATION
  Report Type: Spontaneous
  Country: BR (occurrence: BR)
  Receive Date: 20150629
  Receipt Date: 20150629
  Transmission Date: 20150821
  Serious: Yes (Other)
  Sender: FDA-Public Use
  Company Number: BR-PFIZER INC-2015200895

PATIENT
  Sex: Male

DRUGS (2)
  1. LYRICA [Suspect]
     Active Substance: PREGABALIN
     Dosage: 27 TABLETS OF 150 MG
     Route: 048
     Dates: start: 20150611, end: 20150611
  2. LYRICA [Suspect]
     Active Substance: PREGABALIN
     Indication: SPINAL DISORDER
     Dosage: UNK
     Route: 048

REACTIONS (8)
  - Feeling abnormal [Not Recovered/Not Resolved]
  - Pain [Unknown]
  - Intentional overdose [Unknown]
  - Tongue movement disturbance [Not Recovered/Not Resolved]
  - Disorientation [Not Recovered/Not Resolved]
  - Depression [Unknown]
  - Suicide attempt [Unknown]
  - Condition aggravated [Unknown]

NARRATIVE: CASE EVENT DATE: 201506
